FAERS Safety Report 9830167 (Version 1)
Quarter: 2014Q1

REPORT INFORMATION
  Report Type: Spontaneous
  Country: GB (occurrence: GB)
  Receive Date: 20140120
  Receipt Date: 20140120
  Transmission Date: 20141002
  Serious: Yes (Hospitalization)
  Sender: FDA-Public Use
  Company Number: GB-DRREDDYS-GER/UKI/14/0037208

PATIENT
  Age: 69 Year
  Sex: Female

DRUGS (3)
  1. AMLODIPINE [Suspect]
     Indication: HYPERTENSION
     Dates: start: 20131214
  2. MYSOLINE [Interacting]
     Indication: CONVULSION
     Route: 048
  3. LANSOPRAZOLE [Concomitant]
     Indication: HERNIA

REACTIONS (2)
  - Grand mal convulsion [Recovered/Resolved]
  - Drug interaction [Recovered/Resolved]
